FAERS Safety Report 24455631 (Version 2)
Quarter: 2024Q4

REPORT INFORMATION
  Report Type: Spontaneous
  Country: TH (occurrence: TH)
  Receive Date: 20241017
  Receipt Date: 20241018
  Transmission Date: 20250115
  Serious: No
  Sender: ROCHE
  Company Number: TH-ROCHE-3491122

PATIENT

DRUGS (5)
  1. RITUXIMAB [Suspect]
     Active Substance: RITUXIMAB
     Indication: Product used for unknown indication
     Route: 041
  2. DEXAMETHASONE [Concomitant]
     Active Substance: DEXAMETHASONE
  3. FAMOTIDINE [Concomitant]
     Active Substance: FAMOTIDINE
  4. CHLORPHENIRAMINE MALEATE [Concomitant]
     Active Substance: CHLORPHENIRAMINE MALEATE
  5. GRANULOCYTE COLONY-STIMULATING FACTOR NOS [Concomitant]
     Active Substance: GRANULOCYTE COLONY-STIMULATING FACTOR NOS
     Route: 058

REACTIONS (6)
  - Tumour associated fever [Unknown]
  - Chest discomfort [Unknown]
  - Dyspnoea [Unknown]
  - Blood pressure decreased [Unknown]
  - Chills [Unknown]
  - Hypoxia [Unknown]
